FAERS Safety Report 9598305 (Version 1)
Quarter: 2013Q4

REPORT INFORMATION
  Report Type: Spontaneous
  Country: US (occurrence: US)
  Receive Date: 20131004
  Receipt Date: 20131004
  Transmission Date: 20140711
  Serious: No
  Sender: FDA-Public Use
  Company Number: US-AMGEN-USASP2013023137

PATIENT
  Age: 61 Year
  Sex: Female
  Weight: 124.72 kg

DRUGS (24)
  1. ENBREL [Suspect]
     Indication: PRODUCT USED FOR UNKNOWN INDICATION
     Dosage: 50 MG, QWK
     Route: 058
     Dates: start: 2009
  2. CELEBREX [Concomitant]
     Dosage: UNK
  3. CYMBALTA [Concomitant]
     Dosage: 20 MG, UNK
  4. PANTOPRAZOLE [Concomitant]
     Dosage: 20 MG, UNK
  5. PROTONIX [Concomitant]
     Dosage: 20 MG, UNK
  6. VOLTAREN                           /00372301/ [Concomitant]
     Dosage: 25 MG, EC, UNK
  7. MS CONTIN [Concomitant]
     Dosage: 100 MG, CR, UNK
  8. METHOTREXATE [Concomitant]
     Dosage: 2.5 MG, UNK
  9. PREDNISONE [Concomitant]
     Dosage: 2.5 MG, UNK
  10. LYRICA [Concomitant]
     Dosage: 25 MG, UNK
  11. SYNTHROID [Concomitant]
     Dosage: 25 MUG, UNK
  12. ENABLEX                            /01760401/ [Concomitant]
     Dosage: 7.5 MG, UNK
  13. TRAMADOL HCL [Concomitant]
     Dosage: 50 MG, UNK
  14. METFORMIN [Concomitant]
     Dosage: 500 MG, UNK
  15. FOLIC ACID [Concomitant]
     Dosage: 1 MG, UNK
  16. SKELAXIN                           /00611501/ [Concomitant]
     Dosage: 800 MG, UNK
  17. VITAMIN D                          /00107901/ [Concomitant]
     Dosage: 1000 UNIT, UNK
  18. ENDOCET [Concomitant]
     Dosage: UNK,10-325MG
  19. VESICARE [Concomitant]
     Dosage: 10 MG, UNK
  20. BENICAR [Concomitant]
     Dosage: 5 MG, UNK
  21. ASPIRIN LOW [Concomitant]
     Dosage: 81 MG, EC, UNK
  22. RENAL [Concomitant]
     Dosage: UNK
  23. PERCOCET                           /00446701/ [Concomitant]
     Dosage: UNK, 2.5-325
  24. HEMAX                              /00909301/ [Concomitant]
     Dosage: UNK

REACTIONS (1)
  - Therapeutic response decreased [Unknown]
